FAERS Safety Report 14248925 (Version 2)
Quarter: 2018Q1

REPORT INFORMATION
  Report Type: Spontaneous
  Country: US (occurrence: US)
  Receive Date: 20171204
  Receipt Date: 20180213
  Transmission Date: 20180508
  Serious: No
  Sender: FDA-Public Use
  Company Number: US-LUNDBECK-DKLU2040433

PATIENT
  Age: 85 Year
  Sex: Male

DRUGS (1)
  1. NORTHERA [Suspect]
     Active Substance: DROXIDOPA
     Indication: BLOOD PRESSURE MANAGEMENT
     Dosage: SCHEDULE B / TITRATING
     Route: 065
     Dates: start: 20171117

REACTIONS (2)
  - Blood pressure fluctuation [Unknown]
  - Blood pressure systolic increased [Recovered/Resolved]

NARRATIVE: CASE EVENT DATE: 20171119
